FAERS Safety Report 20305499 (Version 2)
Quarter: 2025Q1

REPORT INFORMATION
  Report Type: Spontaneous
  Country: US (occurrence: US)
  Receive Date: 20220106
  Receipt Date: 20250103
  Transmission Date: 20250409
  Serious: Yes (Other)
  Sender: AMNEAL
  Company Number: US-AMNEAL PHARMACEUTICALS-2021-AMRX-00354

PATIENT
  Age: 40 Year
  Sex: Female

DRUGS (11)
  1. ACTIVELLA [Suspect]
     Active Substance: ESTRADIOL\NORETHINDRONE ACETATE
     Indication: Endometriosis
     Dosage: 1 DOSAGE FORM, DAILY
     Route: 048
     Dates: start: 20180718, end: 20190619
  2. ACTIVELLA [Suspect]
     Active Substance: ESTRADIOL\NORETHINDRONE ACETATE
     Dosage: 1 DOSAGE FORM, DAILY
     Route: 048
     Dates: start: 20190619, end: 20201220
  3. ELAGOLIX [Suspect]
     Active Substance: ELAGOLIX
     Indication: Endometriosis
     Dosage: 200 MILLIGRAM, 2 /DAY
     Route: 048
     Dates: start: 20180718, end: 20190619
  4. ELAGOLIX [Suspect]
     Active Substance: ELAGOLIX
     Dosage: 400 MILLIGRAM, DAILY
     Route: 048
     Dates: start: 20190619, end: 20201220
  5. ADDERALL [Concomitant]
     Active Substance: AMPHETAMINE ASPARTATE\AMPHETAMINE SULFATE\DEXTROAMPHETAMINE SACCHARATE\DEXTROAMPHETAMINE SULFATE
     Indication: Attention deficit hyperactivity disorder
     Dosage: 20 MILLIGRAM, DAILY
     Route: 048
     Dates: start: 2018, end: 20210120
  6. CEFIXIME [Concomitant]
     Active Substance: CEFIXIME
     Indication: Back pain
     Dosage: 5 MILLIGRAM, 2X/DAY
     Route: 048
     Dates: start: 20181115
  7. IBUPROFEN [Concomitant]
     Active Substance: IBUPROFEN
     Indication: Back pain
     Dosage: 800 MILLIGRAM, 3X/DAY
     Route: 048
     Dates: start: 20181115
  8. LEXAPRO [Concomitant]
     Active Substance: ESCITALOPRAM OXALATE
     Indication: Anxiety
     Dosage: 5 MILLIGRAM, DAILY
     Route: 048
     Dates: start: 20190129, end: 202101
  9. METOPROLOL [Concomitant]
     Active Substance: METOPROLOL
     Indication: Palpitations
     Dosage: 50 MILLIGRAM, DAILY
     Route: 048
     Dates: start: 20200729
  10. TROKENDI XR [Concomitant]
     Active Substance: TOPIRAMATE
     Indication: Headache
     Dosage: 100 MILLIGRAM, DAILY
     Route: 048
     Dates: start: 20201021, end: 20210120
  11. RIMEGEPANT [Concomitant]
     Active Substance: RIMEGEPANT
     Indication: Primary headache associated with sexual activity
     Route: 048
     Dates: start: 20201021, end: 20210120

REACTIONS (2)
  - Maternal exposure during pregnancy [Unknown]
  - Live birth [Unknown]
